FAERS Safety Report 16483392 (Version 1)
Quarter: 2019Q2

REPORT INFORMATION
  Report Type: Spontaneous
  Country: US (occurrence: US)
  Receive Date: 20190627
  Receipt Date: 20190627
  Transmission Date: 20190711
  Serious: Yes (Other)
  Sender: FDA-Public Use
  Company Number: US-APOTEX-2019AP017309

PATIENT
  Age: 44 Year
  Sex: Female

DRUGS (1)
  1. CYCLOSPORINE. [Suspect]
     Active Substance: CYCLOSPORINE
     Indication: DERMATITIS CONTACT
     Dosage: UNK
     Route: 048

REACTIONS (3)
  - Condition aggravated [Recovering/Resolving]
  - Therapeutic product cross-reactivity [Unknown]
  - Dermatitis contact [Unknown]
